FAERS Safety Report 19628183 (Version 2)
Quarter: 2021Q3

REPORT INFORMATION
  Report Type: Spontaneous
  Country: MX (occurrence: ES)
  Receive Date: 20210729
  Receipt Date: 20210809
  Transmission Date: 20211014
  Serious: Yes (Hospitalization, Other)
  Sender: FDA-Public Use
  Company Number: MX-BAYER-2021-183773

PATIENT
  Age: 61 Year
  Sex: Male

DRUGS (1)
  1. NEXAVAR [Suspect]
     Active Substance: SORAFENIB
     Indication: RENAL CELL CARCINOMA
     Dosage: 2 DF, BID
     Route: 048
     Dates: start: 20210711

REACTIONS (3)
  - Fatigue [None]
  - Faeces discoloured [None]
  - Gastric ulcer [None]
